FAERS Safety Report 4710826-2 (Version None)
Quarter: 2005Q3

REPORT INFORMATION
  Report Type: 
  Country: None (occurrence: None)
  Receive Date: 20050708
  Receipt Date: 20050628
  Transmission Date: 20060218
  Serious: Yes (Death)
  Sender: FDA-Public Use
  Company Number: 05-03-0349

PATIENT
  Age: 71 Year
  Sex: Male

DRUGS (11)
  1. CLOZAPINE [Suspect]
     Indication: SCHIZOPHRENIA, PARANOID TYPE
     Dosage: 300MG QD  ORAL
     Route: 048
     Dates: start: 20000901, end: 20050101
  2. LASIX [Concomitant]
  3. ACTOS [Concomitant]
  4. SEREVENT [Concomitant]
  5. AZMACORT [Concomitant]
  6. COMBIVENT [Concomitant]
  7. ZANTAC [Concomitant]
  8. LIPITOR [Concomitant]
  9. OXYGEN [Concomitant]
  10. MULTI-VITAMINS [Concomitant]
  11. CALCIUM GLUCONATE [Concomitant]

REACTIONS (2)
  - ACUTE MYOCARDIAL INFARCTION [None]
  - CHRONIC OBSTRUCTIVE PULMONARY DISEASE [None]
